FAERS Safety Report 8971210 (Version 2)
Quarter: 2013Q1

REPORT INFORMATION
  Report Type: Report from Study
  Country: US (occurrence: US)
  Receive Date: 20121218
  Receipt Date: 20130215
  Transmission Date: 20140127
  Serious: Yes (Disabling)
  Sender: FDA-Public Use
  Company Number: US-US-EMD SERONO, INC.-7181607

PATIENT
  Age: 33 None
  Sex: Male

DRUGS (1)
  1. REBIF [Suspect]
     Indication: MULTIPLE SCLEROSIS
     Route: 058
     Dates: start: 20121106

REACTIONS (2)
  - Blindness unilateral [Recovered/Resolved with Sequelae]
  - Multiple sclerosis [Not Recovered/Not Resolved]
